FAERS Safety Report 24689280 (Version 1)
Quarter: 2024Q4

REPORT INFORMATION
  Report Type: Spontaneous
  Country: PL (occurrence: PL)
  Receive Date: 20241203
  Receipt Date: 20241203
  Transmission Date: 20250115
  Serious: Yes (Hospitalization, Other)
  Sender: EPIC PHARM
  Company Number: PL-EPICPHARMA-PL-2024EPCLIT01495

PATIENT
  Age: 15 Year
  Sex: Male

DRUGS (2)
  1. CEFTRIAXONE SODIUM [Suspect]
     Active Substance: CEFTRIAXONE SODIUM
     Indication: Spinal empyema
     Route: 065
  2. VANCOMYCIN [Suspect]
     Active Substance: VANCOMYCIN
     Indication: Spinal empyema
     Route: 065

REACTIONS (2)
  - Acute kidney injury [Recovered/Resolved]
  - Product use in unapproved indication [Unknown]
